FAERS Safety Report 8410004-X (Version None)
Quarter: 2012Q2

REPORT INFORMATION
  Report Type: 
  Country: None (occurrence: None)
  Receive Date: 20120323
  Receipt Date: 20110329
  Transmission Date: 20120825
  Serious: Yes (Hospitalization, Other)
  Sender: FDA-Public Use
  Company Number: 163-21880-11010832

PATIENT
  Age: 76 Year
  Sex: Female
  Weight: 44.4525 kg

DRUGS (32)
  1. MULTIVITAMIN [Concomitant]
  2. DILAUDID [Concomitant]
  3. ARFORMOTEROL (ARGORMOTEROL) [Concomitant]
  4. REVLIMID [Suspect]
     Indication: MULTIPLE MYELOMA
     Dosage: 10 MG, DAILY FOR 21 DAYS THEN OFF 7 DAYS, PO; 10 MG, DAILY X21 DAYS , AND 7 DAYS OFF, PO
     Route: 048
     Dates: start: 20100721
  5. REVLIMID [Suspect]
     Indication: MULTIPLE MYELOMA
     Dosage: 10 MG, DAILY FOR 21 DAYS THEN OFF 7 DAYS, PO; 10 MG, DAILY X21 DAYS , AND 7 DAYS OFF, PO
     Route: 048
     Dates: start: 20101118
  6. DEXAMETHASONE [Concomitant]
  7. PRILOSEC [Concomitant]
  8. FENTANYL [Concomitant]
  9. VITAMIN D [Concomitant]
  10. ALPRAZOLAM [Concomitant]
  11. DOCUSATE (DOCUSATE) [Concomitant]
  12. SENNA (SENNA) [Concomitant]
  13. FORADIL [Concomitant]
  14. GUAIFENESIN [Concomitant]
  15. LORAZEPAM [Concomitant]
  16. ONDANSETRON [Concomitant]
  17. FLEXERIL [Concomitant]
  18. PREDNISONE TAB [Concomitant]
  19. TRAZODONE HCL [Concomitant]
  20. MORPHINE [Concomitant]
  21. MELPHALAN HYDROCHLORIDE [Concomitant]
  22. CHOLECACIFEROL (COLECALCIFEROL) [Concomitant]
  23. GABAPENTIN [Concomitant]
  24. INSULIN (INSULIN) [Concomitant]
  25. OXYCODONE HCL [Concomitant]
  26. AREDIA [Concomitant]
  27. ALBUTEROL [Concomitant]
  28. CALCIUM CARBONATE [Concomitant]
  29. ENOXAPARIN SODIUM [Concomitant]
  30. LOVASTATIN [Concomitant]
  31. ASPIRIN [Concomitant]
  32. IMIPRAMIDE (IMIPRAMIDE) [Concomitant]

REACTIONS (2)
  - PAIN [None]
  - PLASMACYTOMA [None]
